FAERS Safety Report 25736700 (Version 2)
Quarter: 2025Q3

REPORT INFORMATION
  Report Type: Report from Study
  Country: US (occurrence: US)
  Receive Date: 20250828
  Receipt Date: 20250930
  Transmission Date: 20251020
  Serious: Yes (Other)
  Sender: ABBVIE
  Company Number: US-ABBVIE-6432809

PATIENT
  Sex: Male

DRUGS (1)
  1. SKYRIZI [Suspect]
     Active Substance: RISANKIZUMAB-RZAA
     Indication: Psoriasis
     Route: 058

REACTIONS (7)
  - Carpal tunnel syndrome [Not Recovered/Not Resolved]
  - Blood cholesterol abnormal [Recovered/Resolved]
  - Psoriasis [Recovering/Resolving]
  - Blood pressure abnormal [Recovered/Resolved]
  - Trigger finger [Recovering/Resolving]
  - Hordeolum [Not Recovered/Not Resolved]
  - Weight decreased [Unknown]
